FAERS Safety Report 23915112 (Version 1)
Quarter: 2024Q2

REPORT INFORMATION
  Report Type: Other
  Country: GB (occurrence: None)
  Receive Date: 20240529
  Receipt Date: 20240529
  Transmission Date: 20240716
  Serious: Yes (Other)
  Sender: FDA-Public Use
  Company Number: GB-ROCHE-3571255

PATIENT
  Sex: Female

DRUGS (5)
  1. TOCILIZUMAB [Suspect]
     Active Substance: TOCILIZUMAB
     Indication: Rheumatoid arthritis
     Route: 058
  2. THYROXINE [Concomitant]
     Active Substance: LEVOTHYROXINE
  3. RAMIPRIL [Concomitant]
     Active Substance: RAMIPRIL
  4. CALCIUM [Concomitant]
     Active Substance: CALCIUM
  5. CHOLESTEROL [Concomitant]
     Active Substance: CHOLESTEROL

REACTIONS (1)
  - Anaphylactic shock [Unknown]
